FAERS Safety Report 6818844-5 (Version None)
Quarter: 2010Q2

REPORT INFORMATION
  Report Type: 
  Country: None (occurrence: None)
  Receive Date: 20100630
  Receipt Date: 20100618
  Transmission Date: 20101027
  Serious: Yes (Life-Threatening)
  Sender: FDA-Public Use
  Company Number: B0662593A

PATIENT
  Sex: Female

DRUGS (2)
  1. CEFTAZIDIME SODIUM [Suspect]
     Indication: CELLULITIS
     Dosage: INTRAVENOUS
     Route: 042
  2. AMPICILLIN TRIHYDRATE [Concomitant]

REACTIONS (2)
  - ANAPHYLACTIC REACTION [None]
  - NEONATAL DISORDER [None]
